FAERS Safety Report 5591626-0 (Version None)
Quarter: 2008Q1

REPORT INFORMATION
  Report Type: 
  Country: None (occurrence: None)
  Receive Date: 20080115
  Receipt Date: 20080104
  Transmission Date: 20080703
  Serious: Yes (Other)
  Sender: FDA-Public Use
  Company Number: FR-ROCHE-539818

PATIENT
  Age: 92 Year
  Sex: Male

DRUGS (8)
  1. ROCEPHIN [Suspect]
     Dosage: FORM INJECTABLE SOLUTION
     Route: 042
     Dates: start: 20071108, end: 20071114
  2. PREVISCAN [Interacting]
     Indication: CARDIOMYOPATHY
     Dosage: 10 MG EVERY 2 DAYS ALTERNATIVELY WITH 20 MG EVERY 2 DAYS
     Route: 048
     Dates: end: 20071114
  3. PREVISCAN [Interacting]
     Route: 048
     Dates: start: 20071118
  4. EXELON [Concomitant]
  5. ZESTORETIC [Concomitant]
  6. CARDENSIEL [Concomitant]
  7. 1 CONCOMITANT DRUG [Concomitant]
     Dosage: DRUG NAME HEMIGOXINE
  8. DIAMICRON [Concomitant]

REACTIONS (4)
  - DRUG INTERACTION [None]
  - GINGIVAL BLEEDING [None]
  - HAEMATURIA [None]
  - INTERNATIONAL NORMALISED RATIO INCREASED [None]
